FAERS Safety Report 9925130 (Version 3)
Quarter: 2014Q2

REPORT INFORMATION
  Report Type: Spontaneous
  Country: US (occurrence: None)
  Receive Date: 20140221
  Receipt Date: 20140401
  Transmission Date: 20141212
  Serious: Yes (Hospitalization)
  Sender: FDA-Public Use
  Company Number: 2014-US-001813

PATIENT
  Age: 42 Year
  Sex: Female
  Weight: 153.7 kg

DRUGS (19)
  1. XYREM [Suspect]
     Indication: NARCOLEPSY
     Route: 048
     Dates: start: 200903
  2. METHYLPHENIDATE (METHYLPHENIDATE HYDROCHLORIDE) [Concomitant]
  3. METHYLPHENIDATE (METHYLPHENIDATE HYDROCHLORIDE) [Concomitant]
  4. NUVIGIL (ARMODAFINIL) [Concomitant]
  5. NUVIGIL (ARMODAFINIL) [Concomitant]
  6. ABILIFY (ARIPIPRAZOLE) [Concomitant]
  7. BACLOFEN (BACLOFEN) [Concomitant]
  8. BUSPIRONE HYDROCHLORIDE (BUSPIRONE HYDROCHLORIDE) [Concomitant]
  9. CALCIUM (CALCIUM) [Concomitant]
  10. VITAMINS [Concomitant]
  11. COUMADIN (COUMARIN) [Concomitant]
  12. LEXAPRO (ESCITALOPRAM OXALATE) [Concomitant]
  13. LEVOTHYROXINE (LEVOTHYROXINE SODIUM) [Concomitant]
  14. MIGRANAL (DIHYDROERGOTAMINE MESILATE) [Concomitant]
  15. OMEPRAZOLE (OMEPRAZOLE) [Concomitant]
  16. PROPANOLOL (PROPRANOLOL HYDROCHLORIDE) [Concomitant]
  17. PROVERA (MEDROXYPROGESTERONE ACETATE) [Concomitant]
  18. SIMVASTATIN (SIMVASTATIN) [Concomitant]
  19. ZONISAMIDE (ZONISAMIDE) UNKNOWN [Concomitant]

REACTIONS (1)
  - Migraine [None]
